FAERS Safety Report 5192976-2 (Version None)
Quarter: 2006Q4

REPORT INFORMATION
  Report Type: 
  Country: None (occurrence: None)
  Receive Date: 20061228
  Receipt Date: 20060330
  Transmission Date: 20070319
  Serious: No
  Sender: FDA-Public Use
  Company Number: US-GLAXOSMITHKLINE-A0599738A

PATIENT
  Age: 71 Year
  Sex: Male

DRUGS (5)
  1. FLONASE [Suspect]
     Dosage: 2SPR PER DAY
     Route: 045
     Dates: start: 20060302
  2. LIPITOR [Concomitant]
  3. ZETIA [Concomitant]
  4. DIOVAN [Concomitant]
  5. ASPIRIN [Concomitant]

REACTIONS (7)
  - DYSPHONIA [None]
  - DYSPNOEA [None]
  - NASAL DISCOMFORT [None]
  - NASAL DISORDER [None]
  - PAINFUL RESPIRATION [None]
  - RHINITIS [None]
  - SNEEZING [None]
